FAERS Safety Report 4894789-5 (Version None)
Quarter: 2006Q1

REPORT INFORMATION
  Report Type: 
  Country: None (occurrence: None)
  Receive Date: 20060126
  Receipt Date: 20060126
  Transmission Date: 20060701
  Serious: Yes (Hospitalization)
  Sender: FDA-Public Use
  Company Number: None

PATIENT
  Sex: Male
  Weight: 101.3 kg

DRUGS (12)
  1. GLEEVEC [Suspect]
     Indication: GLIOBLASTOMA MULTIFORME
     Dosage: 400MG  DAILY, PO
     Route: 048
     Dates: start: 20050901, end: 20051228
  2. HYDROXYUREA [Suspect]
     Indication: GLIOBLASTOMA MULTIFORME
     Dosage: 500 MG PO, BID
     Route: 048
     Dates: start: 20050901, end: 20051229
  3. RAD001 [Suspect]
     Indication: GLIOBLASTOMA MULTIFORME
     Dosage: 5 MG PO DAILY
     Route: 048
     Dates: start: 20050928, end: 20051227
  4. LAMICTAL [Concomitant]
  5. DECADRON [Concomitant]
  6. ATIVAN [Concomitant]
  7. PROTONIX [Concomitant]
  8. MULTI-VITAMIN [Concomitant]
  9. CELEBREX [Concomitant]
  10. SEROQUEL [Concomitant]
  11. LIPITOR [Concomitant]
  12. DILANTIN [Concomitant]

REACTIONS (13)
  - ABNORMAL BEHAVIOUR [None]
  - AGGRESSION [None]
  - ANGER [None]
  - ASTHENIA [None]
  - BALANCE DISORDER [None]
  - COGNITIVE DISORDER [None]
  - CONFUSIONAL STATE [None]
  - CONVULSION [None]
  - FALL [None]
  - FATIGUE [None]
  - INCONTINENCE [None]
  - MENTAL STATUS CHANGES [None]
  - VERBAL ABUSE [None]
